FAERS Safety Report 8913997 (Version 1)
Quarter: 2012Q4

REPORT INFORMATION
  Report Type: 
  Country: US (occurrence: US)
  Receive Date: 20121119
  Receipt Date: 20121119
  Transmission Date: 20130627
  Serious: Yes (Other)
  Sender: FDA-Public Use
  Company Number: US-ELI_LILLY_AND_COMPANY-US201211004351

PATIENT
  Sex: Male

DRUGS (1)
  1. HUMATROPE [Suspect]

REACTIONS (2)
  - Neoplasm malignant [Unknown]
  - Nephrectomy [Unknown]
